FAERS Safety Report 25309885 (Version 2)
Quarter: 2025Q2

REPORT INFORMATION
  Report Type: Spontaneous
  Country: TH (occurrence: TH)
  Receive Date: 20250514
  Receipt Date: 20250515
  Transmission Date: 20250717
  Serious: Yes (Other)
  Sender: ABBVIE
  Company Number: TH-ABBVIE-6272331

PATIENT
  Age: 62 Year
  Sex: Male

DRUGS (6)
  1. OZURDEX [Suspect]
     Active Substance: DEXAMETHASONE
     Indication: Product used for unknown indication
     Route: 031
     Dates: start: 20230208, end: 20230208
  2. OZURDEX [Suspect]
     Active Substance: DEXAMETHASONE
     Route: 031
     Dates: start: 20241224, end: 20241224
  3. OZURDEX [Suspect]
     Active Substance: DEXAMETHASONE
     Route: 031
     Dates: start: 20240124, end: 20240124
  4. OZURDEX [Suspect]
     Active Substance: DEXAMETHASONE
     Route: 031
     Dates: start: 20231024, end: 20231024
  5. OZURDEX [Suspect]
     Active Substance: DEXAMETHASONE
     Route: 031
     Dates: start: 20230711, end: 20230711
  6. FARICIMAB [Concomitant]
     Active Substance: FARICIMAB
     Indication: Product used for unknown indication
     Route: 031
     Dates: start: 202408

REACTIONS (4)
  - Cerebral infarction [Unknown]
  - Intraocular pressure increased [Unknown]
  - Cataract subcapsular [Unknown]
  - Cataract nuclear [Unknown]

NARRATIVE: CASE EVENT DATE: 20240430
